FAERS Safety Report 11717930 (Version 1)
Quarter: 2015Q4

REPORT INFORMATION
  Report Type: Spontaneous
  Country: US (occurrence: None)
  Receive Date: 20151109
  Receipt Date: 20151109
  Transmission Date: 20160304
  Serious: Yes (Hospitalization)
  Sender: FDA-Public Use
  Company Number: None

PATIENT
  Age: 55 Year
  Sex: Female
  Weight: 92.99 kg

DRUGS (4)
  1. CONTRAVE [Suspect]
     Active Substance: BUPROPION HYDROCHLORIDE\NALTREXONE HYDROCHLORIDE
     Indication: WEIGHT DECREASED
     Dosage: 1 DOSE?1 PILL
     Route: 048
  2. CYMBALTA [Concomitant]
     Active Substance: DULOXETINE HYDROCHLORIDE
  3. VITAMIN D [Concomitant]
     Active Substance: CHOLECALCIFEROL
  4. PROTONIX [Concomitant]
     Active Substance: PANTOPRAZOLE SODIUM

REACTIONS (3)
  - Arrhythmia [None]
  - Feeling abnormal [None]
  - Presyncope [None]

NARRATIVE: CASE EVENT DATE: 20150902
